FAERS Safety Report 6013380-0 (Version None)
Quarter: 2008Q4

REPORT INFORMATION
  Report Type: 
  Country: None (occurrence: None)
  Receive Date: 20081219
  Receipt Date: 20081216
  Transmission Date: 20090506
  Serious: Yes (Death)
  Sender: FDA-Public Use
  Company Number: US-KINGPHARMUSA00001-K200801415

PATIENT
  Age: 61 Year
  Sex: Female

DRUGS (8)
  1. LEVOXYL [Suspect]
     Dosage: UNK
     Route: 048
  2. ACETAMINOPHEN W/ CODEINE [Suspect]
     Dosage: UNK
     Route: 048
  3. OXYCODONE [Suspect]
     Dosage: UNK
     Route: 048
  4. ESCITALOPRAM [Suspect]
     Dosage: UNK
     Route: 048
  5. THIAZIDE DERIVATIVES [Suspect]
     Dosage: UNK
     Route: 048
  6. ACETAMINOPHEN W/DIPHENHYDRAMINE HYDROCHLORIDE [Suspect]
     Dosage: UNK
     Route: 048
  7. ESTRADIOL [Suspect]
     Dosage: UNK
     Route: 048
  8. PROGESTERONE [Suspect]
     Dosage: UNK
     Route: 048

REACTIONS (1)
  - COMPLETED SUICIDE [None]
